FAERS Safety Report 10076243 (Version 5)
Quarter: 2014Q3

REPORT INFORMATION
  Report Type: Spontaneous
  Country: US (occurrence: None)
  Receive Date: 20140410
  Receipt Date: 20140806
  Transmission Date: 20150326
  Serious: Yes (Hospitalization, Other)
  Sender: FDA-Public Use
  Company Number: UTC-046829

PATIENT
  Age: 66 Year
  Sex: Female
  Weight: 103.4 kg

DRUGS (3)
  1. REMODULIN [Suspect]
     Active Substance: TREPROSTINIL
     Indication: PULMONARY ARTERIAL HYPERTENSION
     Dosage: 0.00625, SUBCUTANEOUS
     Route: 058
     Dates: start: 20140221
  2. LETAIRIS (AMBRISENTAN) UNKNOWN [Concomitant]
  3. ADCIRCA (TADALAFIL) UNKNOWN [Concomitant]

REACTIONS (2)
  - Cerebrovascular accident [None]
  - Gastrointestinal polyp haemorrhage [None]

NARRATIVE: CASE EVENT DATE: 20140405
